FAERS Safety Report 10735594 (Version 1)
Quarter: 2015Q1

REPORT INFORMATION
  Report Type: Spontaneous
  Country: US (occurrence: US)
  Receive Date: 20150126
  Receipt Date: 20150126
  Transmission Date: 20150721
  Serious: Yes (Other)
  Sender: FDA-Public Use
  Company Number: US-JNJFOC-20150108736

PATIENT
  Age: 49 Year
  Sex: Female

DRUGS (4)
  1. ERYTHROMYCIN. [Concomitant]
     Active Substance: ERYTHROMYCIN
     Indication: TOOTHACHE
     Route: 065
  2. OTHER THERAPEUTIC MEDICATION [Suspect]
     Active Substance: UNSPECIFIED INGREDIENT
     Indication: NASOPHARYNGITIS
     Route: 065
  3. TYLENOL ARTHRITIS PAIN [Suspect]
     Active Substance: ACETAMINOPHEN
     Indication: TOOTHACHE
     Dosage: ABOUT 8 PER DAY
     Route: 048
  4. TYLENOL ARTHRITIS PAIN [Suspect]
     Active Substance: ACETAMINOPHEN
     Route: 048

REACTIONS (8)
  - Hepatomegaly [Recovered/Resolved]
  - Toxicity to various agents [Unknown]
  - Vomiting [Unknown]
  - Alanine aminotransferase increased [None]
  - Blood alkaline phosphatase increased [None]
  - Liver function test abnormal [Recovering/Resolving]
  - Aspartate aminotransferase increased [None]
  - Nausea [Unknown]

NARRATIVE: CASE EVENT DATE: 20050812
